FAERS Safety Report 16617345 (Version 1)
Quarter: 2019Q3

REPORT INFORMATION
  Report Type: Spontaneous
  Country: DE (occurrence: DE)
  Receive Date: 20190723
  Receipt Date: 20190723
  Transmission Date: 20191004
  Serious: Yes (Hospitalization)
  Sender: FDA-Public Use
  Company Number: DE-009507513-1907DEU010000

PATIENT
  Age: 77 Year
  Sex: Male
  Weight: 72 kg

DRUGS (12)
  1. FORXIGA [Suspect]
     Active Substance: DAPAGLIFLOZIN
     Dosage: 10 MILLIGRAM, 1-0-0-0, TABLET
     Route: 048
  2. TORSEMIDE. [Concomitant]
     Active Substance: TORSEMIDE
     Dosage: 10 MILLIGRAM, 1-1-0-0, TABLET
     Route: 048
  3. BERODUAL [Concomitant]
     Active Substance: FENOTEROL HYDROBROMIDE\IPRATROPIUM BROMIDE
     Dosage: NK MG, 2 PUFFS ON DEMAND, DOSING AEROSOL
     Route: 055
  4. FOSTER [Concomitant]
     Active Substance: BECLOMETHASONE\FORMOTEROL
     Dosage: 100/6 ?G, ON DEMAND, 1-0-1-0, DOSING AEROSOL
     Route: 055
  5. DAXAS [Concomitant]
     Active Substance: ROFLUMILAST
     Dosage: 500 MICROGRAM, 0-0-0.5-0, TABLETS
     Route: 048
  6. TILIDIN RETARD [Concomitant]
     Dosage: 50/4 MG, 0-0-0-1, RETARD-TABLET
     Route: 048
  7. PANTOPRAZOLE [Concomitant]
     Active Substance: PANTOPRAZOLE
     Dosage: 20 MG, 1-0-0-0, TABLET
     Route: 048
  8. VELMETIA [Suspect]
     Active Substance: METFORMIN\SITAGLIPTIN
     Dosage: 50/1000 MG, 1-0-1-0, TABLET
     Route: 048
  9. ACTRAPHANE [Suspect]
     Active Substance: INSULIN HUMAN
     Dosage: 30/70 IE, 36-10-16-0
     Route: 058
  10. DIPYRONE [Concomitant]
     Active Substance: DIPYRONE
     Dosage: 30 GTT, 30 GTT ON DEMAND, DROPS
     Route: 048
  11. METOPROLOL. [Concomitant]
     Active Substance: METOPROLOL
     Dosage: 47.5 MG, 1-0-1-0, RETARD-TABLET
     Route: 048
  12. SPIRIVA RESPIMAT [Concomitant]
     Active Substance: TIOTROPIUM BROMIDE
     Dosage: 2.5 MICROGRAM, 1-0-1-0,DOSING AEROSOL
     Route: 055

REACTIONS (6)
  - General physical health deterioration [Unknown]
  - Diabetic coma [Unknown]
  - Disturbance in attention [Unknown]
  - Dehydration [Unknown]
  - Hypoglycaemia [Unknown]
  - Product administration error [Unknown]
